FAERS Safety Report 9002833 (Version 1)
Quarter: 2013Q1

REPORT INFORMATION
  Report Type: Spontaneous
  Country: US (occurrence: US)
  Receive Date: 20130108
  Receipt Date: 20130108
  Transmission Date: 20140127
  Serious: Yes (Hospitalization)
  Sender: FDA-Public Use
  Company Number: US-009507513-1301USA001838

PATIENT
  Age: 13 Year
  Sex: Male

DRUGS (5)
  1. SINGULAIR [Suspect]
     Indication: RHINITIS ALLERGIC
     Dosage: 10 MG, QD
  2. SINGULAIR [Suspect]
     Indication: SINUSITIS
  3. LEVAQUIN [Suspect]
     Dosage: 500 MG, QD
  4. CLINDAMYCIN [Concomitant]
  5. PREVACID [Concomitant]

REACTIONS (4)
  - Hallucination [Unknown]
  - Feeling of body temperature change [Unknown]
  - Crying [Unknown]
  - Chromatopsia [Unknown]
